FAERS Safety Report 12582118 (Version 2)
Quarter: 2016Q3

REPORT INFORMATION
  Report Type: Report from Study
  Country: JP (occurrence: JP)
  Receive Date: 20160722
  Receipt Date: 20160811
  Transmission Date: 20161109
  Serious: Yes (Hospitalization)
  Sender: FDA-Public Use
  Company Number: JP-ACTELION-A-CH2016-138860

PATIENT
  Age: 71 Year
  Sex: Female

DRUGS (15)
  1. BERAPROST SODIUM [Concomitant]
     Active Substance: BERAPROST SODIUM
  2. AZATHIOPRINE. [Concomitant]
     Active Substance: AZATHIOPRINE
  3. ALFACALCIDOL [Concomitant]
     Active Substance: ALFACALCIDOL
  4. ALENDRONATE SODIUM. [Concomitant]
     Active Substance: ALENDRONATE SODIUM
  5. DIMETICONE [Concomitant]
     Active Substance: DIMETHICONE
  6. OXYGEN. [Concomitant]
     Active Substance: OXYGEN
  7. ESOMEPRAZOLE MAGNESIUM. [Concomitant]
     Active Substance: ESOMEPRAZOLE MAGNESIUM
  8. MOSAPRIDE CITRATE [Concomitant]
     Active Substance: MOSAPRIDE CITRATE
  9. FUROSEMIDE. [Concomitant]
     Active Substance: FUROSEMIDE
  10. OPSUMIT [Suspect]
     Active Substance: MACITENTAN
     Indication: PULMONARY ARTERIAL HYPERTENSION
     Dosage: 10 MG, QD
     Route: 048
     Dates: start: 20150722, end: 20160630
  11. VONOPRAZAN [Concomitant]
     Active Substance: VONOPRAZAN
  12. PREDNISOLONE. [Concomitant]
     Active Substance: PREDNISOLONE
  13. CICLOSPORIN [Concomitant]
     Active Substance: CYCLOSPORINE
  14. TADALAFIL [Concomitant]
     Active Substance: TADALAFIL
  15. SULFAMETHOXAZOLE-TRIMETHOPRIM (SMZ) [Concomitant]
     Active Substance: SULFAMETHOXAZOLE\TRIMETHOPRIM

REACTIONS (5)
  - Red blood cell count decreased [Recovering/Resolving]
  - Haemoglobin decreased [Recovering/Resolving]
  - Therapy non-responder [Unknown]
  - Hypochromic anaemia [Recovering/Resolving]
  - Haematocrit decreased [Recovering/Resolving]

NARRATIVE: CASE EVENT DATE: 20150824
